FAERS Safety Report 24000606 (Version 1)
Quarter: 2024Q2

REPORT INFORMATION
  Report Type: Spontaneous
  Country: JP (occurrence: JP)
  Receive Date: 20240621
  Receipt Date: 20240621
  Transmission Date: 20240716
  Serious: Yes (Death, Other)
  Sender: FDA-Public Use
  Company Number: JP-DSJP-DSJ-2024-127286

PATIENT
  Age: 7 Decade
  Sex: Male

DRUGS (1)
  1. ENHERTU [Suspect]
     Active Substance: FAM-TRASTUZUMAB DERUXTECAN-NXKI
     Indication: HER2 positive gastric cancer
     Dosage: 4.4 MG/KG, ONCE EVERY 3 WK
     Route: 041
     Dates: start: 20220614, end: 20240514

REACTIONS (3)
  - Sepsis [Fatal]
  - Febrile neutropenia [Unknown]
  - Underdose [Unknown]

NARRATIVE: CASE EVENT DATE: 20220614
